FAERS Safety Report 7619948-X (Version None)
Quarter: 2011Q3

REPORT INFORMATION
  Report Type: 
  Country: None (occurrence: None)
  Receive Date: 20110719
  Receipt Date: 20110708
  Transmission Date: 20111222
  Serious: Yes (Other)
  Sender: FDA-Public Use
  Company Number: IT-MPIJNJ-2010-02699

PATIENT

DRUGS (1)
  1. VELCADE [Suspect]
     Indication: MULTIPLE MYELOMA
     Dosage: 1.8 MG, CYCLIC
     Route: 042
     Dates: start: 20100322, end: 20100325

REACTIONS (2)
  - LUNG DISORDER [None]
  - HYPERPYREXIA [None]
